FAERS Safety Report 15202595 (Version 1)
Quarter: 2018Q3

REPORT INFORMATION
  Report Type: Spontaneous
  Country: US (occurrence: US)
  Receive Date: 20180726
  Receipt Date: 20180726
  Transmission Date: 20181010
  Serious: Yes (Other)
  Sender: FDA-Public Use
  Company Number: US-TEVA-2018-US-930749

PATIENT
  Age: 69 Year
  Sex: Female

DRUGS (1)
  1. ALENDRONATE SODIUM. [Suspect]
     Active Substance: ALENDRONATE SODIUM
     Indication: OSTEOPOROSIS
     Dosage: DOSE STRENGTH:  70
     Route: 065
     Dates: start: 2016, end: 201806

REACTIONS (5)
  - Paraesthesia [Not Recovered/Not Resolved]
  - Gastrooesophageal reflux disease [Unknown]
  - Arthralgia [Not Recovered/Not Resolved]
  - Coating in mouth [Not Recovered/Not Resolved]
  - Abdominal discomfort [Unknown]

NARRATIVE: CASE EVENT DATE: 2017
